FAERS Safety Report 25601455 (Version 1)
Quarter: 2025Q3

REPORT INFORMATION
  Report Type: Spontaneous
  Country: US (occurrence: None)
  Receive Date: 20250723
  Receipt Date: 20250723
  Transmission Date: 20251021
  Serious: Yes (Life-Threatening, Hospitalization, Disabling, Other)
  Sender: FDA-CTU
  Company Number: None

PATIENT
  Age: 56 Year
  Sex: Male
  Weight: 108 kg

DRUGS (9)
  1. OPDIVO [Suspect]
     Active Substance: NIVOLUMAB
     Indication: Gastric cancer
     Dates: start: 20250516, end: 20250517
  2. YERVOY [Suspect]
     Active Substance: IPILIMUMAB
  3. HUMIRA [Suspect]
     Active Substance: ADALIMUMAB
  4. UNSPECIFIED INGREDIENT [Concomitant]
     Active Substance: UNSPECIFIED INGREDIENT
  5. WARFARIN [Concomitant]
     Active Substance: WARFARIN
  6. BETAINE [Concomitant]
     Active Substance: BETAINE
  7. SERTRALINE [Concomitant]
     Active Substance: SERTRALINE HYDROCHLORIDE
  8. PREDNISONE [Concomitant]
     Active Substance: PREDNISONE
  9. RINVOQ (Upadacitinib) [Concomitant]

REACTIONS (2)
  - Adverse drug reaction [None]
  - Colitis [None]

NARRATIVE: CASE EVENT DATE: 20250530
